FAERS Safety Report 4981452-5 (Version None)
Quarter: 2006Q2

REPORT INFORMATION
  Report Type: 
  Country: None (occurrence: None)
  Receive Date: 20060424
  Receipt Date: 20050829
  Transmission Date: 20061013
  Serious: Yes (Death, Hospitalization, Other)
  Sender: FDA-Public Use
  Company Number: US-MERCK-0508USA04701

PATIENT
  Age: 64 Year
  Sex: Male
  Weight: 91 kg

DRUGS (2)
  1. VIOXX [Suspect]
     Indication: ARTHRALGIA
     Route: 048
     Dates: start: 20000201, end: 20040528
  2. VIOXX [Suspect]
     Route: 048
     Dates: start: 20000201, end: 20040528

REACTIONS (30)
  - ADJUSTMENT DISORDER [None]
  - AGITATION [None]
  - ANAEMIA [None]
  - ANGINA UNSTABLE [None]
  - AORTIC ANEURYSM [None]
  - ARTERIOSCLEROSIS [None]
  - BRADYCARDIA [None]
  - CARDIO-RESPIRATORY ARREST [None]
  - CAROTID ARTERY STENOSIS [None]
  - CATARACT NUCLEAR [None]
  - CERVICAL SPINAL STENOSIS [None]
  - COLONIC POLYP [None]
  - CONFUSIONAL STATE [None]
  - CORONARY ARTERY DISEASE [None]
  - DEPRESSION [None]
  - DIABETES MELLITUS [None]
  - DIVERTICULITIS [None]
  - DYSPHAGIA [None]
  - DYSPNOEA [None]
  - ESSENTIAL HYPERTENSION [None]
  - GASTROINTESTINAL HAEMORRHAGE [None]
  - HYPERLIPIDAEMIA [None]
  - IRON DEFICIENCY ANAEMIA [None]
  - NEUROPATHY [None]
  - PROCEDURAL HYPERTENSION [None]
  - RESPIRATORY FAILURE [None]
  - RHEUMATOID ARTHRITIS [None]
  - STRIDOR [None]
  - TONGUE PARALYSIS [None]
  - UPPER GASTROINTESTINAL HAEMORRHAGE [None]
